FAERS Safety Report 14707859 (Version 9)
Quarter: 2025Q2

REPORT INFORMATION
  Report Type: Other
  Country: DE (occurrence: DE)
  Receive Date: 20180403
  Receipt Date: 20250616
  Transmission Date: 20250716
  Serious: Yes (Hospitalization, Other)
  Sender: MACLEODS
  Company Number: None

PATIENT

DRUGS (65)
  1. CLOPIDOGREL [Suspect]
     Active Substance: CLOPIDOGREL BISULFATE
     Indication: Product used for unknown indication
     Route: 048
     Dates: start: 20170124, end: 20170124
  2. CLOPIDOGREL [Suspect]
     Active Substance: CLOPIDOGREL BISULFATE
     Route: 065
     Dates: end: 20170124
  3. LOSARTAN [Suspect]
     Active Substance: LOSARTAN
     Indication: Product used for unknown indication
     Dosage: 1 DOSAGE FORM, QD, LOSARTAN POTASSIUM
     Route: 065
     Dates: start: 2016
  4. LOSARTAN [Suspect]
     Active Substance: LOSARTAN
     Dosage: 1 DF, QD, DAILY, LOSARTAN POTASSIUM
     Route: 065
     Dates: start: 2016
  5. HYDROCHLOROTHIAZIDE\LOSARTAN [Suspect]
     Active Substance: HYDROCHLOROTHIAZIDE\LOSARTAN
     Indication: Product used for unknown indication
     Dosage: 1 DOSAGE FORM, QD (100/25 MG)
     Route: 065
     Dates: start: 2016
  6. PANTOPRAZOLE [Suspect]
     Active Substance: PANTOPRAZOLE
     Indication: Product used for unknown indication
     Dosage: 20 MG, QD
     Route: 065
  7. PANTOPRAZOLE [Suspect]
     Active Substance: PANTOPRAZOLE
     Route: 065
  8. VALSARTAN [Suspect]
     Active Substance: VALSARTAN
     Indication: Product used for unknown indication
     Route: 065
  9. ASPIRIN [Suspect]
     Active Substance: ASPIRIN
     Indication: Product used for unknown indication
     Route: 048
  10. METOPROLOL [Suspect]
     Active Substance: METOPROLOL
     Indication: Product used for unknown indication
     Route: 065
     Dates: start: 20170124, end: 20170124
  11. PREDNISOLONE [Suspect]
     Active Substance: PREDNISOLONE
     Indication: Product used for unknown indication
     Route: 048
  12. DICLOFENAC [Suspect]
     Active Substance: DICLOFENAC
     Indication: Product used for unknown indication
     Route: 065
  13. DICLOFENAC [Suspect]
     Active Substance: DICLOFENAC
     Dosage: 2 DOSAGE FORM, QD
     Route: 065
     Dates: start: 201610
  14. EDOXABAN TOSYLATE [Suspect]
     Active Substance: EDOXABAN TOSYLATE
     Indication: Product used for unknown indication
     Dosage: 30 UNK, TABLET
     Route: 048
  15. EDOXABAN TOSYLATE [Suspect]
     Active Substance: EDOXABAN TOSYLATE
     Indication: Atrial fibrillation
     Dosage: 30 MG, QD
     Route: 065
     Dates: start: 20160930
  16. BISOPROLOL FUMARATE [Suspect]
     Active Substance: BISOPROLOL FUMARATE
     Indication: Product used for unknown indication
     Dosage: 0.5 IN 1 DAY
     Route: 065
     Dates: start: 2016
  17. BISOPROLOL FUMARATE [Suspect]
     Active Substance: BISOPROLOL FUMARATE
     Dosage: 5 MG, QD
     Route: 065
     Dates: start: 2016
  18. XIPAMIDE [Suspect]
     Active Substance: XIPAMIDE
     Indication: Product used for unknown indication
     Route: 065
     Dates: start: 20170124, end: 20170124
  19. XIPAMIDE [Suspect]
     Active Substance: XIPAMIDE
     Route: 065
     Dates: end: 20170124
  20. SIMVASTATIN [Suspect]
     Active Substance: SIMVASTATIN
     Indication: Product used for unknown indication
     Route: 065
  21. TORSEMIDE [Suspect]
     Active Substance: TORSEMIDE
     Indication: Product used for unknown indication
     Dosage: 45 MILLIGRAM, QD, TORASEMID
     Route: 065
     Dates: start: 20170124, end: 20170124
  22. TORSEMIDE [Suspect]
     Active Substance: TORSEMIDE
     Dosage: 5 MILLIGRAM, QD, TORASEMID
     Route: 065
  23. TORSEMIDE [Suspect]
     Active Substance: TORSEMIDE
     Dosage: 5 MG, QD
     Route: 065
     Dates: start: 20170124, end: 20170124
  24. TORSEMIDE [Suspect]
     Active Substance: TORSEMIDE
     Route: 065
     Dates: start: 20170124, end: 20170124
  25. TORSEMIDE [Suspect]
     Active Substance: TORSEMIDE
     Route: 065
  26. TROSPIUM CHLORIDE [Suspect]
     Active Substance: TROSPIUM CHLORIDE
     Indication: Product used for unknown indication
     Dosage: 15 MILLIGRAM, QD
     Route: 065
  27. TROSPIUM CHLORIDE [Suspect]
     Active Substance: TROSPIUM CHLORIDE
     Dosage: 45 MILLIGRAM, QD
     Route: 065
     Dates: start: 20170124, end: 20170124
  28. TROSPIUM CHLORIDE [Suspect]
     Active Substance: TROSPIUM CHLORIDE
     Dosage: 15 MILLIGRAM, QD
     Route: 065
     Dates: start: 20170124, end: 20170124
  29. TROSPIUM CHLORIDE [Suspect]
     Active Substance: TROSPIUM CHLORIDE
     Dosage: 100 MILLIGRAM, QD
     Route: 065
  30. AMIODARONE [Suspect]
     Active Substance: AMIODARONE
     Indication: Product used for unknown indication
     Route: 065
  31. HUMIRA [Suspect]
     Active Substance: ADALIMUMAB
     Indication: Product used for unknown indication
     Dosage: 1 DOSAGE FORM, Q.W.SOLUTION FOR INJECTION, SUBDERMAL
     Route: 058
     Dates: start: 20120411, end: 20160927
  32. HUMIRA [Suspect]
     Active Substance: ADALIMUMAB
     Indication: Rheumatoid arthritis
     Route: 058
     Dates: start: 20161115
  33. HUMIRA [Suspect]
     Active Substance: ADALIMUMAB
     Dosage: 2 DOSAGE FORM, BIW
     Route: 058
     Dates: start: 20120411, end: 20160927
  34. HUMIRA [Suspect]
     Active Substance: ADALIMUMAB
     Dosage: 1 DOSAGE FORM, Q2W, SUBDERMAL
     Route: 058
     Dates: start: 20160927
  35. HUMIRA [Suspect]
     Active Substance: ADALIMUMAB
     Dosage: UNK, QW, SUBDERMAL
     Route: 058
     Dates: start: 20161115
  36. HUMIRA [Suspect]
     Active Substance: ADALIMUMAB
     Dosage: 40 MG, QW
     Route: 058
     Dates: start: 20161115
  37. HUMIRA [Suspect]
     Active Substance: ADALIMUMAB
     Dosage: 40 MG, Q2W, SUBDERMAL
     Route: 058
     Dates: start: 20120411, end: 20160927
  38. HUMIRA [Suspect]
     Active Substance: ADALIMUMAB
     Route: 058
     Dates: start: 20120111
  39. HUMIRA [Suspect]
     Active Substance: ADALIMUMAB
     Dosage: 2 DOSAGE FORM, BIW, SUBDERMAL
     Route: 058
     Dates: start: 20120111, end: 20160927
  40. HUMIRA [Suspect]
     Active Substance: ADALIMUMAB
     Dosage: 1 DOSAGE FORM, Q2W, SUBDERMAL
     Route: 058
     Dates: start: 20160927
  41. CHOLECALCIFEROL [Suspect]
     Active Substance: CHOLECALCIFEROL
     Indication: Product used for unknown indication
     Dosage: 20000 INTERNATIONAL UNIT, Q.W.
     Route: 065
  42. HYDROCHLOROTHIAZIDE\LOSARTAN POTASSIUM [Suspect]
     Active Substance: HYDROCHLOROTHIAZIDE\LOSARTAN POTASSIUM
     Indication: Product used for unknown indication
     Dosage: UNK UNK, QD, 100/25 MG
     Route: 065
     Dates: start: 2016
  43. MOVICOL [Suspect]
     Active Substance: POLYETHYLENE GLYCOL 3350\POTASSIUM CHLORIDE\SODIUM BICARBONATE\SODIUM CHLORIDE
     Indication: Product used for unknown indication
     Route: 065
     Dates: start: 20170124
  44. FUROSEMIDE\SPIRONOLACTONE [Suspect]
     Active Substance: FUROSEMIDE\SPIRONOLACTONE
     Indication: Product used for unknown indication
     Dosage: 1 DOSAGE FORM, QD, 50MG/20MG
     Route: 065
     Dates: start: 201610, end: 201610
  45. FUROSEMIDE\SPIRONOLACTONE [Suspect]
     Active Substance: FUROSEMIDE\SPIRONOLACTONE
     Route: 065
     Dates: start: 201610, end: 201610
  46. LACTULOSE [Suspect]
     Active Substance: LACTULOSE
     Indication: Product used for unknown indication
     Route: 065
     Dates: start: 20170124, end: 20170124
  47. FENTANYL TRANSDERMAL SYSTEM [Suspect]
     Active Substance: FENTANYL
     Indication: Product used for unknown indication
     Dosage: 75 MICROGRAM, Q.H. (75 MICROGRAM/HOUR AND PLASTER CHANGE EVERY 3 DAYS)
     Route: 062
  48. DICLOFENAC [Suspect]
     Active Substance: DICLOFENAC
     Indication: Product used for unknown indication
     Dosage: 2 DF, QD
     Route: 065
     Dates: start: 201610, end: 201610
  49. CLOPIDOGREL BISULFATE [Suspect]
     Active Substance: CLOPIDOGREL BISULFATE
     Indication: Product used for unknown indication
     Route: 048
     Dates: start: 20170124, end: 20170124
  50. TROSPIUM CHLORIDE [Suspect]
     Active Substance: TROSPIUM CHLORIDE
     Indication: Product used for unknown indication
     Dosage: 45 MG, QD
     Route: 065
     Dates: start: 20170124, end: 20170124
  51. TROSPIUM CHLORIDE [Suspect]
     Active Substance: TROSPIUM CHLORIDE
     Dosage: 15 MG, QD
     Route: 065
     Dates: start: 20170124, end: 20170124
  52. TROSPIUM CHLORIDE [Suspect]
     Active Substance: TROSPIUM CHLORIDE
     Indication: Product used for unknown indication
     Route: 065
     Dates: start: 20170124
  53. TROSPIUM CHLORIDE [Suspect]
     Active Substance: TROSPIUM CHLORIDE
     Dosage: 15 MG, QD
     Route: 065
     Dates: start: 20170124
  54. PHLOROGLUCINOL [Suspect]
     Active Substance: PHLOROGLUCINOL
     Indication: Product used for unknown indication
     Route: 065
     Dates: start: 20170124, end: 20170124
  55. PHLOROGLUCINOL [Suspect]
     Active Substance: PHLOROGLUCINOL
     Route: 065
     Dates: start: 20170124, end: 20170124
  56. LEVOSIMENDAN [Concomitant]
     Active Substance: LEVOSIMENDAN
     Indication: Product used for unknown indication
     Route: 065
     Dates: start: 201611, end: 201611
  57. SODIUM CHLORIDE [Concomitant]
     Active Substance: SODIUM CHLORIDE
     Indication: Product used for unknown indication
     Dosage: 1 DF, QD
     Route: 065
  58. SODIUM CHLORIDE [Concomitant]
     Active Substance: SODIUM CHLORIDE
     Dosage: DOSE: 3, QD
     Route: 065
  59. FOLIC ACID [Concomitant]
     Active Substance: FOLIC ACID
     Indication: Product used for unknown indication
     Route: 065
     Dates: start: 20170124
  60. ENOXAPARIN [Concomitant]
     Active Substance: ENOXAPARIN
     Indication: Product used for unknown indication
     Dosage: 0.6 MILLIGRAM, QD
     Route: 065
  61. CORDAREX [Concomitant]
     Active Substance: AMIODARONE
     Indication: Product used for unknown indication
     Dosage: 200 MILLIGRAM, QD
     Route: 065
  62. NADROPARIN CALCIUM [Concomitant]
     Active Substance: NADROPARIN CALCIUM
     Indication: Product used for unknown indication
     Dosage: 5700 INTERNATIONAL UNIT, QD (SOLUTION FOR INJECTION)
     Route: 058
  63. Riopan [Concomitant]
     Indication: Product used for unknown indication
     Dosage: 1600 MILLIGRAM, QD,  EVERY DAY, GEL
     Route: 048
  64. Riopan [Concomitant]
     Dosage: 4800 MG, QD, EVERY DAY, GEL
     Route: 048
  65. TORSEMIDE [Suspect]
     Active Substance: TORSEMIDE
     Indication: Product used for unknown indication
     Route: 065
     Dates: start: 20170124, end: 20170124

REACTIONS (66)
  - Cardiogenic shock [Unknown]
  - Gastrointestinal haemorrhage [Recovered/Resolved]
  - Groin pain [Not Recovered/Not Resolved]
  - Urinary tract infection [Recovering/Resolving]
  - Vomiting [Unknown]
  - Diverticulum intestinal [Recovering/Resolving]
  - Haematuria [Recovering/Resolving]
  - Femoral hernia incarcerated [Recovered/Resolved]
  - Wound infection pseudomonas [Recovering/Resolving]
  - Anaemia [Recovered/Resolved]
  - Lymphatic fistula [Recovered/Resolved]
  - Seroma [Unknown]
  - Eructation [Unknown]
  - Pulmonary hypertension [Recovering/Resolving]
  - Hiatus hernia [Unknown]
  - Inflammatory marker increased [Recovered/Resolved]
  - Faecaloma [Unknown]
  - Left ventricular dysfunction [Recovered/Resolved]
  - Abdominal discomfort [Unknown]
  - Hepatic cyst [Unknown]
  - Arthralgia [Unknown]
  - Mitral valve incompetence [Unknown]
  - Dyspepsia [Unknown]
  - Gait disturbance [Recovering/Resolving]
  - Dyspnoea [Unknown]
  - Coronary artery disease [Unknown]
  - Decreased appetite [Unknown]
  - Cardiovascular disorder [Unknown]
  - Acute kidney injury [Unknown]
  - Hyperkalaemia [Unknown]
  - Aplastic anaemia [Unknown]
  - Postoperative wound infection [Recovered/Resolved]
  - Joint dislocation [Recovered/Resolved]
  - Syncope [Recovered/Resolved]
  - Anuria [Recovered/Resolved]
  - Urinary retention [Unknown]
  - Wound dehiscence [Recovered/Resolved]
  - Osteopenia [Recovered/Resolved]
  - Arterial haemorrhage [Recovered/Resolved]
  - Pancreatic steatosis [Unknown]
  - Escherichia infection [Unknown]
  - Myocardial infarction [Recovered/Resolved]
  - Haemarthrosis [Unknown]
  - Tachyarrhythmia [Unknown]
  - Oedema peripheral [Unknown]
  - Tricuspid valve incompetence [Unknown]
  - Myelodysplastic syndrome [Unknown]
  - Aortic valve stenosis [Unknown]
  - Hyponatraemia [Unknown]
  - Joint dislocation [Unknown]
  - Impaired healing [Recovered/Resolved]
  - Aortic arteriosclerosis [Unknown]
  - General physical health deterioration [Unknown]
  - Peripheral swelling [Recovered/Resolved]
  - Escherichia infection [Unknown]
  - Eructation [Unknown]
  - Groin pain [Not Recovered/Not Resolved]
  - Diverticulum intestinal [Recovering/Resolving]
  - Gait disturbance [Unknown]
  - Faecaloma [Unknown]
  - Haematuria [Recovering/Resolving]
  - Joint dislocation [Recovered/Resolved]
  - Fall [Recovered/Resolved]
  - Gastrointestinal haemorrhage [Recovered/Resolved]
  - Joint dislocation [Recovered/Resolved]
  - Joint dislocation [Recovered/Resolved]

NARRATIVE: CASE EVENT DATE: 20160101
